FAERS Safety Report 9345417 (Version 2)
Quarter: 2013Q3

REPORT INFORMATION
  Report Type: Report from Study
  Country: MX (occurrence: MX)
  Receive Date: 20130613
  Receipt Date: 20130711
  Transmission Date: 20140515
  Serious: Yes (Death, Other)
  Sender: FDA-Public Use
  Company Number: MX-ROCHE-1214761

PATIENT
  Age: 67 Year
  Sex: Male

DRUGS (1)
  1. XELODA [Suspect]
     Indication: GASTROINTESTINAL CARCINOMA
     Route: 065
     Dates: start: 20120711, end: 201302

REACTIONS (7)
  - Gastric sarcoma [Not Recovered/Not Resolved]
  - Asthenia [Not Recovered/Not Resolved]
  - Decreased appetite [Not Recovered/Not Resolved]
  - Weight decreased [Not Recovered/Not Resolved]
  - Nausea [Not Recovered/Not Resolved]
  - Disease progression [Fatal]
  - Pneumonia [Unknown]
